FAERS Safety Report 23890370 (Version 1)
Quarter: 2024Q2

REPORT INFORMATION
  Report Type: Spontaneous
  Country: SA (occurrence: SA)
  Receive Date: 20240523
  Receipt Date: 20240523
  Transmission Date: 20240716
  Serious: Yes (Hospitalization, Other)
  Sender: FDA-Public Use
  Company Number: SA-AstraZeneca-CH-00627492A

PATIENT
  Age: 18 Month
  Sex: Male

DRUGS (1)
  1. STRENSIQ [Suspect]
     Active Substance: ASFOTASE ALFA
     Indication: Hypophosphatasia
     Dosage: 22 MILLIGRAM, TIW
     Route: 051

REACTIONS (2)
  - Craniosynostosis [Not Recovered/Not Resolved]
  - Tooth loss [Not Recovered/Not Resolved]
